FAERS Safety Report 6593805-2 (Version None)
Quarter: 2010Q1

REPORT INFORMATION
  Report Type: 
  Country: None (occurrence: None)
  Receive Date: 20100212
  Receipt Date: 20100201
  Transmission Date: 20100710
  Serious: Yes (Other)
  Sender: FDA-Public Use
  Company Number: 2010SP006240

PATIENT
  Age: 5 Year
  Weight: 18 kg

DRUGS (4)
  1. DESLORATADINE [Suspect]
     Indication: DRUG USE FOR UNKNOWN INDICATION
     Dosage: 4 ML; BID; PO
     Route: 048
     Dates: start: 20100127
  2. TOPLEXIL /00111401/ (CON.) [Concomitant]
  3. PYRANTEL PAMOATE (CON.) [Concomitant]
  4. PROCATEROL HYDROCHLORIDE (CON.) [Concomitant]

REACTIONS (2)
  - ACCIDENTAL OVERDOSE [None]
  - HAEMOPTYSIS [None]
